FAERS Safety Report 5227501-0 (Version None)
Quarter: 2007Q1

REPORT INFORMATION
  Report Type: 
  Country: None (occurrence: None)
  Receive Date: 20070202
  Receipt Date: 20070201
  Transmission Date: 20070707
  Serious: Yes (Other)
  Sender: FDA-Public Use
  Company Number: US-SHR-US-2006-026661

PATIENT
  Sex: Female

DRUGS (1)
  1. CLIMARA PRO [Suspect]
     Dosage: 0.045/0.15
     Route: 062

REACTIONS (2)
  - OVARIAN MASS [None]
  - PHARMACEUTICAL PRODUCT COMPLAINT [None]
